FAERS Safety Report 16073864 (Version 8)
Quarter: 2020Q4

REPORT INFORMATION
  Report Type: Report from Study
  Country: None (occurrence: JP)
  Receive Date: 20190314
  Receipt Date: 20201216
  Transmission Date: 20210113
  Serious: Yes (Hospitalization)
  Sender: FDA-Public Use
  Company Number: JP-ABBVIE-19S-087-2699901-00

PATIENT
  Age: 75 Year
  Sex: Female

DRUGS (27)
  1. DUODOPA [Suspect]
     Active Substance: CARBIDOPA\LEVODOPA
     Dosage: MD: 3.0 ML?CD: 2.6 ML/HR X 16 HRS?ED: 2.0 ML/UNIT X 7
     Route: 050
     Dates: start: 20190130, end: 20190226
  2. DUODOPA [Suspect]
     Active Substance: CARBIDOPA\LEVODOPA
     Dosage: MD: 3.0 ML?CD: 3.0 ML/HR X 16 HRS?ED: 2.0 ML/UNIT X 7
     Route: 050
     Dates: start: 20190613, end: 20190717
  3. DUODOPA [Suspect]
     Active Substance: CARBIDOPA\LEVODOPA
     Dosage: MD: 3.0 ML?CD: 3.2 ML/HR X 16 HRS?ED: 2.0 ML/UNIT X 7?STRENGTH: 20 MG/ML 5 MG/ML
     Route: 050
     Dates: start: 20190819
  4. PRAMIPEXOLE HYDROCHLORIDE HYDRATE [Concomitant]
     Active Substance: PRAMIPEXOLE DIHYDROCHLORIDE
     Indication: PARKINSON^S DISEASE
     Route: 048
     Dates: end: 20190525
  5. DUODOPA [Suspect]
     Active Substance: CARBIDOPA\LEVODOPA
     Dosage: MD: 6.8 ML?CD: 2.1 ML/HR X 16 HRS?ED: 2.0 ML/UNIT X 1
     Route: 050
     Dates: start: 20180612, end: 20181011
  6. DUODOPA [Suspect]
     Active Substance: CARBIDOPA\LEVODOPA
     Dosage: MD: 3.0 ML?CD: 2.5 ML/HR X 16 HRS?ED: 2.0 ML/UNIT X 7
     Route: 050
     Dates: start: 20181212, end: 20190129
  7. AMANTADINE HYDROCHLORIDE. [Concomitant]
     Active Substance: AMANTADINE HYDROCHLORIDE
     Route: 048
     Dates: start: 20180822
  8. MAGNESIUM OXIDE. [Concomitant]
     Active Substance: MAGNESIUM OXIDE
     Indication: PRODUCT USED FOR UNKNOWN INDICATION
     Route: 048
  9. SENNOSIDES A+B [Concomitant]
     Active Substance: SENNOSIDES A AND B
     Indication: PRODUCT USED FOR UNKNOWN INDICATION
     Route: 048
  10. DUODOPA [Suspect]
     Active Substance: CARBIDOPA\LEVODOPA
     Dosage: MD: 2.5 ML?CD: 2.1 ML/HR X 16 HRS?ED: 1.5 ML/UNIT X 7
     Route: 050
     Dates: start: 20181130, end: 20181203
  11. DUODOPA [Suspect]
     Active Substance: CARBIDOPA\LEVODOPA
     Dosage: MD: 3.0 ML?CD: 3.1 ML/HR X 16 HRS?ED: 2.0 ML/UNIT X 7
     Route: 050
     Dates: start: 20190718, end: 20190818
  12. DUODOPA [Suspect]
     Active Substance: CARBIDOPA\LEVODOPA
     Dosage: MD: 2.0 ML?CD: 1.4 ML/HR X 16 HRS?ED: 2.0 ML/UNIT X 2
     Route: 050
     Dates: start: 20181012, end: 20181017
  13. DUODOPA [Suspect]
     Active Substance: CARBIDOPA\LEVODOPA
     Dosage: MD: 3.0 ML?CD: 3.1 ML/HR X 16 HRS?ED: 2.0 ML/UNIT X 7
     Route: 050
     Dates: start: 20190315, end: 20190421
  14. MIRTAZAPINE. [Concomitant]
     Active Substance: MIRTAZAPINE
     Indication: PRODUCT USED FOR UNKNOWN INDICATION
     Dates: start: 20180913, end: 20190318
  15. DUODOPA [Suspect]
     Active Substance: CARBIDOPA\LEVODOPA
     Dosage: MD: 3.0 ML?CD: 2.8 ML/HR X 16 HRS?ED: 2.0 ML/UNIT X 7
     Route: 050
     Dates: start: 20190227, end: 20190314
  16. DUODOPA [Suspect]
     Active Substance: CARBIDOPA\LEVODOPA
     Dosage: MD: 3.0 ML?CD: 2.9 ML/HR X 16 HRS?ED: 2.0 ML/UNIT X 7
     Route: 050
     Dates: start: 20190422, end: 20190612
  17. DUODOPA [Suspect]
     Active Substance: CARBIDOPA\LEVODOPA
     Indication: PARKINSON^S DISEASE
     Dosage: MD: 6.6 ML?CD: 2.0 ML/HR X 16 HRS?ED: 2.0 ML/UNIT X 7
     Route: 050
     Dates: start: 20170907, end: 20180611
  18. DUODOPA [Suspect]
     Active Substance: CARBIDOPA\LEVODOPA
     Dosage: MD: 2.5 ML?CD: 2.1 ML/HR X 16 HRS?ED: 2.0 ML/UNIT X 7
     Route: 050
     Dates: start: 20181204, end: 20181211
  19. PRAMIPEXOLE HYDROCHLORIDE HYDRATE [Concomitant]
     Active Substance: PRAMIPEXOLE DIHYDROCHLORIDE
     Route: 048
     Dates: start: 20190526
  20. AMANTADINE HYDROCHLORIDE. [Concomitant]
     Active Substance: AMANTADINE HYDROCHLORIDE
     Indication: PARKINSON^S DISEASE
     Route: 048
     Dates: end: 20180821
  21. AMLODIPINE BESILATE [Concomitant]
     Active Substance: AMLODIPINE BESYLATE
     Indication: PRODUCT USED FOR UNKNOWN INDICATION
     Route: 048
  22. DUODOPA [Suspect]
     Active Substance: CARBIDOPA\LEVODOPA
     Route: 050
  23. MIRABEGRON [Concomitant]
     Active Substance: MIRABEGRON
     Indication: PRODUCT USED FOR UNKNOWN INDICATION
     Route: 048
     Dates: end: 20190521
  24. CARBIDOPA, LEVODOPA AND ENTACAPONE [Concomitant]
     Active Substance: CARBIDOPA\ENTACAPONE\LEVODOPA
     Indication: PARKINSON^S DISEASE
     Route: 048
     Dates: start: 20190525
  25. DUODOPA [Suspect]
     Active Substance: CARBIDOPA\LEVODOPA
     Dosage: MD: 2.0 ML?CD: 1.8 ML/HR X 16 HRS?ED: 2.0 ML/UNIT X 2
     Route: 050
     Dates: start: 20181018, end: 20181129
  26. BISOPROLOL FUMARATE. [Concomitant]
     Active Substance: BISOPROLOL FUMARATE
     Indication: PRODUCT USED FOR UNKNOWN INDICATION
     Route: 048
     Dates: start: 20181013
  27. REBAMIPIDE [Concomitant]
     Active Substance: REBAMIPIDE
     Indication: PRODUCT USED FOR UNKNOWN INDICATION

REACTIONS (10)
  - Inflammatory marker increased [Recovering/Resolving]
  - Device breakage [Unknown]
  - On and off phenomenon [Recovered/Resolved]
  - Wheelchair user [Unknown]
  - Tremor [Unknown]
  - Fall [Unknown]
  - Decubitus ulcer [Recovered/Resolved]
  - Malaise [Unknown]
  - On and off phenomenon [Unknown]
  - Parkinson^s disease [Recovering/Resolving]

NARRATIVE: CASE EVENT DATE: 201809
